FAERS Safety Report 16978805 (Version 1)
Quarter: 2019Q4

REPORT INFORMATION
  Report Type: Spontaneous
  Country: US (occurrence: US)
  Receive Date: 20191031
  Receipt Date: 20191031
  Transmission Date: 20200122
  Serious: Yes (Death)
  Sender: FDA-Public Use
  Company Number: US-PFIZER INC-2019463407

PATIENT
  Age: 57 Year
  Sex: Male

DRUGS (7)
  1. MEROPENEM. [Suspect]
     Active Substance: MEROPENEM
     Indication: PSEUDOMONAS AERUGINOSA MENINGITIS
     Dosage: UNK
  2. CEFTRIAXONE SODIUM. [Suspect]
     Active Substance: CEFTRIAXONE SODIUM
     Indication: PSEUDOMONAS AERUGINOSA MENINGITIS
     Dosage: UNK
  3. AMPICILLIN SODIUM. [Suspect]
     Active Substance: AMPICILLIN SODIUM
     Indication: PSEUDOMONAS AERUGINOSA MENINGITIS
     Dosage: UNK
  4. AVIBACTAM SODIUM/CEFTAZIDIME PENTAHYDRATE [Suspect]
     Active Substance: AVIBACTAM SODIUM\CEFTAZIDIME
     Indication: PSEUDOMONAS AERUGINOSA MENINGITIS
     Dosage: UNK
  5. ACYCLOVIR SODIUM. [Suspect]
     Active Substance: ACYCLOVIR SODIUM
     Indication: PSEUDOMONAS AERUGINOSA MENINGITIS
     Dosage: UNK
  6. TOBRAMYCIN. [Suspect]
     Active Substance: TOBRAMYCIN
     Indication: PSEUDOMONAS AERUGINOSA MENINGITIS
     Dosage: UNK
     Route: 037
  7. VANCOMYCIN HCL [Suspect]
     Active Substance: VANCOMYCIN HYDROCHLORIDE
     Indication: PSEUDOMONAS AERUGINOSA MENINGITIS
     Dosage: UNK

REACTIONS (1)
  - Drug ineffective [Fatal]
